FAERS Safety Report 4846557-8 (Version None)
Quarter: 2005Q4

REPORT INFORMATION
  Report Type: 
  Country: None (occurrence: None)
  Receive Date: 20051202
  Receipt Date: 20051118
  Transmission Date: 20060501
  Serious: Yes (Other)
  Sender: FDA-Public Use
  Company Number: KII-2005-0019802

PATIENT
  Age: 16 Year
  Sex: Female

DRUGS (1)
  1. OXYCONTIN [Suspect]
     Indication: INTENTIONAL DRUG MISUSE
     Dosage: SEE TEXT, INHALATION
     Route: 055

REACTIONS (8)
  - BLOOD PRESSURE DIASTOLIC INCREASED [None]
  - COMA [None]
  - DRUG ABUSER [None]
  - HEART RATE INCREASED [None]
  - PRURITUS [None]
  - RESPIRATORY RATE DECREASED [None]
  - SOMNOLENCE [None]
  - TEARFULNESS [None]
